FAERS Safety Report 9300369 (Version 2)
Quarter: 2013Q2

REPORT INFORMATION
  Report Type: Spontaneous
  Country: MX (occurrence: MX)
  Receive Date: 20130521
  Receipt Date: 20130607
  Transmission Date: 20140414
  Serious: Yes (Other)
  Sender: FDA-Public Use
  Company Number: MX-JNJFOC-20130414156

PATIENT
  Age: 30 Year
  Sex: Female
  Weight: 73 kg

DRUGS (8)
  1. REMICADE [Suspect]
     Indication: RHEUMATOID ARTHRITIS
     Route: 042
     Dates: start: 20130304
  2. REMICADE [Suspect]
     Indication: RHEUMATOID ARTHRITIS
     Route: 042
     Dates: start: 20130405
  3. HYDROCORTISONE [Concomitant]
     Indication: PREMEDICATION
     Route: 042
     Dates: start: 20130405
  4. HYDROCORTISONE [Concomitant]
     Indication: PREMEDICATION
     Route: 042
     Dates: start: 20130304
  5. CLOROTRIMETON [Concomitant]
     Indication: PREMEDICATION
     Route: 042
     Dates: start: 20130304
  6. CLOROTRIMETON [Concomitant]
     Indication: PREMEDICATION
     Route: 042
     Dates: start: 20130405
  7. RITUXAN [Concomitant]
     Route: 065
  8. MABTHERA [Concomitant]
     Route: 065

REACTIONS (7)
  - Throat irritation [Recovered/Resolved]
  - Erythema [Unknown]
  - Swelling face [Unknown]
  - Infusion related reaction [Recovered/Resolved]
  - Dyspnoea [Recovered/Resolved]
  - Generalised erythema [Recovered/Resolved]
  - Rash [Recovered/Resolved]
